FAERS Safety Report 4299924-8 (Version None)
Quarter: 2004Q1

REPORT INFORMATION
  Report Type: 
  Country: None (occurrence: None)
  Receive Date: 20040220
  Receipt Date: 20040213
  Transmission Date: 20041129
  Serious: Yes (Life-Threatening)
  Sender: FDA-Public Use
  Company Number: 200412053GDDC

PATIENT
  Age: 46 Year
  Sex: Male
  Weight: 80 kg

DRUGS (7)
  1. NATRILIX - SLOW RELEASE [Suspect]
     Indication: HYPERTENSION
     Route: 048
     Dates: start: 20031105, end: 20031118
  2. SANDIMMUNE [Concomitant]
     Dates: start: 20010301
  3. CELLCEPT [Concomitant]
     Dates: start: 20010301
  4. BISOPROLOL [Concomitant]
     Dates: start: 20000101
  5. VESDIL [Concomitant]
     Dates: start: 20010101
  6. PRAVASIN [Concomitant]
     Dates: start: 20010101
  7. OMAOR [Concomitant]
     Dates: start: 20030301

REACTIONS (1)
  - NEPHRITIS INTERSTITIAL [None]
